FAERS Safety Report 5269429-6 (Version None)
Quarter: 2007Q1

REPORT INFORMATION
  Report Type: 
  Country: None (occurrence: None)
  Receive Date: 20070314
  Receipt Date: 20070305
  Transmission Date: 20070707
  Serious: Yes (Hospitalization)
  Sender: FDA-Public Use
  Company Number: 234027

PATIENT
  Age: 56 Year
  Sex: Male

DRUGS (9)
  1. MABTHERA (RITUXIMAB) CON FOR SOLUTION FOR INFUSION [Suspect]
     Indication: RHEUMATOID ARTHRITIS
     Dosage: 1 G, INTRAVENOUS
     Route: 042
     Dates: start: 20061109, end: 20061123
  2. CORTICOID (CORTICOSTEROID NOS) [Concomitant]
  3. MOSCONTIN (MORPHINE SULFATE) [Concomitant]
  4. AMLODIPINE BESYLATE [Concomitant]
  5. SECTRAL 200 (ACEBUTOLOL) [Concomitant]
  6. COZAAR [Concomitant]
  7. VERCYTE [Concomitant]
  8. PLAVIX [Concomitant]
  9. PANTOPRAZOLE SODIUM [Concomitant]

REACTIONS (3)
  - CONDITION AGGRAVATED [None]
  - PLATELET COUNT DECREASED [None]
  - RHEUMATOID ARTHRITIS [None]
